FAERS Safety Report 7985613-2 (Version None)
Quarter: 2011Q4

REPORT INFORMATION
  Report Type: 
  Country: None (occurrence: None)
  Receive Date: 20111216
  Receipt Date: 20111202
  Transmission Date: 20120403
  Serious: Yes (Hospitalization)
  Sender: FDA-Public Use
  Company Number: CA-BRISTOL-MYERS SQUIBB COMPANY-15207863

PATIENT
  Age: 70 Year
  Sex: Female
  Weight: 100 kg

DRUGS (16)
  1. HYZAAR [Concomitant]
     Indication: HYPERTENSION
     Dosage: ! D.F:50/12.5MG
     Dates: start: 19850101
  2. IMODIUM [Concomitant]
     Indication: DIARRHOEA
     Dates: start: 20080501
  3. POTASSIUM CHLORIDE [Concomitant]
     Indication: DIARRHOEA
     Dates: start: 20090401
  4. EMO-CORT [Concomitant]
     Indication: ACNE
     Dosage: 1 D.F=190 UNITS NOT SPECIFIED
     Dates: start: 20100608
  5. DOXYCYCLINE [Concomitant]
     Indication: ACNE
     Route: 048
     Dates: start: 20100601
  6. CODEINE SULFATE [Concomitant]
     Indication: COUGH
     Dates: start: 20111001
  7. SENOKOT [Concomitant]
     Indication: CONSTIPATION
     Dosage: 1 D.F:6-8MG
     Dates: start: 20081201
  8. BRIVANIB ALANINATE [Suspect]
     Indication: COLORECTAL CANCER METASTATIC
     Route: 048
     Dates: start: 20100526, end: 20100705
  9. CETUXIMAB [Suspect]
     Indication: COLORECTAL CANCER METASTATIC
     Dosage: 840MG:26MAY10 525MG:01JUN10-12JUL10 01JUN10:23NOV11:412MG
     Route: 042
     Dates: start: 20100526, end: 20111123
  10. ASPIRIN [Concomitant]
     Indication: CARDIOVASCULAR EVENT PROPHYLAXIS
     Dosage: MAY08:12JUL10 08OCT10:ONG
     Dates: start: 20080501
  11. ACETAMINOPHEN [Concomitant]
     Indication: HEADACHE
     Dates: start: 20100526
  12. ANUSOL [Concomitant]
     Indication: PROCTALGIA
     Dosage: HS
     Dates: start: 20100621
  13. CLINDAMYCIN HCL [Concomitant]
     Dates: start: 20100531
  14. ATIVAN [Concomitant]
     Indication: INSOMNIA
     Dates: start: 20070101
  15. CLOTRIMAZOLE [Concomitant]
     Indication: VULVOVAGINAL PRURITUS
     Dates: start: 20100709
  16. STEMETIL [Concomitant]
     Indication: VOMITING
     Route: 048
     Dates: start: 20100619

REACTIONS (3)
  - THROMBOSIS IN DEVICE [None]
  - SMALL INTESTINAL OBSTRUCTION [None]
  - METASTASES TO CENTRAL NERVOUS SYSTEM [None]
